FAERS Safety Report 21380917 (Version 1)
Quarter: 2022Q3

REPORT INFORMATION
  Report Type: Spontaneous
  Country: US (occurrence: None)
  Receive Date: 20220923
  Receipt Date: 20220923
  Transmission Date: 20221026
  Serious: Yes (Hospitalization)
  Sender: FDA-Public Use
  Company Number: None

PATIENT
  Age: 83 Year
  Sex: Female
  Weight: 58.97 kg

DRUGS (7)
  1. LAPATINIB DITOSYLATE [Suspect]
     Active Substance: LAPATINIB DITOSYLATE
     Indication: Breast cancer female
     Dosage: FREQUENCY : DAILY;?
     Route: 048
     Dates: start: 20220506
  2. AMLODIPINE [Concomitant]
     Active Substance: AMLODIPINE BESYLATE
  3. BENZONATATE [Concomitant]
     Active Substance: BENZONATATE
  4. CALCIUM CITRATE [Concomitant]
     Active Substance: CALCIUM CITRATE
  5. LACTOBACILLUS ACIDOPHILUS [Concomitant]
     Active Substance: LACTOBACILLUS ACIDOPHILUS
  6. MAGNESIUM OXIDE [Concomitant]
     Active Substance: MAGNESIUM OXIDE
  7. Multivitmains/Fluoride [Concomitant]

REACTIONS (2)
  - Dehydration [None]
  - Blood potassium decreased [None]

NARRATIVE: CASE EVENT DATE: 20220919
